FAERS Safety Report 18715959 (Version 2)
Quarter: 2021Q1

REPORT INFORMATION
  Report Type: Spontaneous
  Country: US (occurrence: US)
  Receive Date: 20210108
  Receipt Date: 20210331
  Transmission Date: 20210419
  Serious: Yes (Other)
  Sender: FDA-Public Use
  Company Number: NVSC2021US000780

PATIENT
  Age: 54 Year
  Sex: Male

DRUGS (7)
  1. CEFTRIAXONE SODIUM. [Interacting]
     Active Substance: CEFTRIAXONE SODIUM
     Dosage: UNK
     Route: 041
  2. RIFAMPICIN [Interacting]
     Active Substance: RIFAMPIN
     Indication: ANTIBIOTIC THERAPY
     Dosage: UNK
     Route: 065
  3. DAPTOMYCIN. [Interacting]
     Active Substance: DAPTOMYCIN
     Indication: ANTIBIOTIC THERAPY
     Dosage: UNK
     Route: 065
  4. ANIDULAFUNGIN [Interacting]
     Active Substance: ANIDULAFUNGIN
     Indication: ANTIBIOTIC THERAPY
     Dosage: UNK
     Route: 065
  5. CEFTRIAXONE SODIUM. [Suspect]
     Active Substance: CEFTRIAXONE SODIUM
     Indication: ANTIBIOTIC THERAPY
     Dosage: UNK
     Route: 065
  6. VANCOMYCIN HYDROCHLORIDE. [Interacting]
     Active Substance: VANCOMYCIN HYDROCHLORIDE
     Indication: ANTIBIOTIC THERAPY
     Dosage: UNK
     Route: 065
  7. MEROPENEM. [Interacting]
     Active Substance: MEROPENEM
     Indication: ANTIBIOTIC THERAPY
     Dosage: UNK
     Route: 065

REACTIONS (3)
  - Deep vein thrombosis [Unknown]
  - Rash [Recovered/Resolved]
  - Drug interaction [Unknown]
